FAERS Safety Report 25790874 (Version 1)
Quarter: 2025Q3

REPORT INFORMATION
  Report Type: Spontaneous
  Country: US (occurrence: None)
  Receive Date: 20250910
  Receipt Date: 20250910
  Transmission Date: 20251021
  Serious: No
  Sender: FDA-CTU
  Company Number: None

PATIENT
  Age: 75 Year
  Sex: Female
  Weight: 88.45 kg

DRUGS (12)
  1. TIZANIDINE HYDROCHLORIDE [Suspect]
     Active Substance: TIZANIDINE HYDROCHLORIDE
     Indication: Pain
     Dosage: OTHER QUANTITY : 2 PILLS AS NEEDED;?FREQUENCY : TWICE A DAY;?
     Route: 048
     Dates: end: 20250729
  2. LOW DOSE ASPIRIN [Concomitant]
     Active Substance: ASPIRIN
  3. LISINOPRIL [Concomitant]
     Active Substance: LISINOPRIL
  4. GLIMEPIRIDE [Concomitant]
     Active Substance: GLIMEPIRIDE
  5. MET-JANUMET XR [Concomitant]
  6. GABAPENTIN [Concomitant]
     Active Substance: GABAPENTIN
  7. PRAVASTATIN SODIUM [Concomitant]
     Active Substance: PRAVASTATIN SODIUM
  8. ALLOPURINOL [Concomitant]
     Active Substance: ALLOPURINOL
  9. CELECOXIB [Concomitant]
     Active Substance: CELECOXIB
  10. PROPRANOLOL HYDROCHLORIDE [Concomitant]
     Active Substance: PROPRANOLOL HYDROCHLORIDE
  11. FAMOTIDINE [Concomitant]
     Active Substance: FAMOTIDINE
  12. RELIEF FACTOR X2 DIETARY SUPPLEMENT [Concomitant]

REACTIONS (3)
  - Fall [None]
  - Skin laceration [None]
  - Nightmare [None]
